FAERS Safety Report 9483664 (Version 1)
Quarter: 2013Q3

REPORT INFORMATION
  Report Type: Spontaneous
  Country: US (occurrence: US)
  Receive Date: 20130828
  Receipt Date: 20130828
  Transmission Date: 20140515
  Serious: Yes (Other)
  Sender: FDA-Public Use
  Company Number: US-AMGEN-KDL309729

PATIENT
  Age: 41 Year
  Sex: Female

DRUGS (3)
  1. ENBREL [Suspect]
     Indication: PSORIATIC ARTHROPATHY
     Dosage: 50 MG, QWK
     Route: 058
     Dates: start: 20080827
  2. MYCOPHENOLATE MOFETIL [Concomitant]
     Dosage: 2000 MG, QD
  3. ASPIRIN [Concomitant]
     Dosage: UNK UNK, TID

REACTIONS (5)
  - Systemic lupus erythematosus [Unknown]
  - Blood disorder [Unknown]
  - Drug ineffective [Not Recovered/Not Resolved]
  - Increased tendency to bruise [Unknown]
  - Injection site bruising [Unknown]
